FAERS Safety Report 18051789 (Version 2)
Quarter: 2020Q3

REPORT INFORMATION
  Report Type: Spontaneous
  Country: CA (occurrence: CA)
  Receive Date: 20200721
  Receipt Date: 20200723
  Transmission Date: 20201103
  Serious: Yes (Life-Threatening)
  Sender: FDA-Public Use
  Company Number: NVSC2020CA205053

PATIENT
  Age: 2 Year
  Sex: Male

DRUGS (2)
  1. DABRAFENIB [Suspect]
     Active Substance: DABRAFENIB
     Indication: GLIOMA
     Dosage: UNK
     Route: 048
  2. TRAMETINIB [Suspect]
     Active Substance: TRAMETINIB
     Indication: GLIOMA
     Dosage: UNK
     Route: 048

REACTIONS (4)
  - Blindness [Recovered/Resolved]
  - Neurological decompensation [Recovered/Resolved]
  - Rebound effect [Recovered/Resolved]
  - Product use in unapproved indication [Unknown]
